FAERS Safety Report 5191415-5 (Version None)
Quarter: 2006Q4

REPORT INFORMATION
  Report Type: 
  Country: None (occurrence: None)
  Receive Date: 20061219
  Receipt Date: 20061206
  Transmission Date: 20070319
  Serious: Yes (Other)
  Sender: FDA-Public Use
  Company Number: 2006PV023730

PATIENT
  Age: 46 Year
  Sex: Female

DRUGS (18)
  1. BYETTA [Suspect]
     Indication: DIABETES MELLITUS NON-INSULIN-DEPENDENT
     Dosage: 5 MCG; SC
     Route: 058
     Dates: start: 20060915, end: 20061002
  2. DEPAKOTE [Suspect]
     Indication: DRUG USE FOR UNKNOWN INDICATION
     Dates: end: 20060101
  3. METFORMIN HCL [Concomitant]
  4. ZOMIG [Concomitant]
  5. TOPAMAX [Concomitant]
  6. LAMICTAL [Concomitant]
  7. ATACAND [Concomitant]
  8. LEVOTHROID [Concomitant]
  9. LIPITOR [Concomitant]
  10. PREVACID [Concomitant]
  11. ASPIRIN [Concomitant]
  12. ENTEX CAP [Concomitant]
  13. M.V.I. [Concomitant]
  14. NASACORT [Concomitant]
  15. RELAFEN [Concomitant]
  16. SINGULAIR [Concomitant]
  17. ZYRTEC [Concomitant]
  18. VIVELLE [Concomitant]

REACTIONS (3)
  - ANTICONVULSANT DRUG LEVEL DECREASED [None]
  - DIARRHOEA [None]
  - GRAND MAL CONVULSION [None]
